FAERS Safety Report 10334222 (Version 1)
Quarter: 2014Q3

REPORT INFORMATION
  Report Type: Spontaneous
  Country: CN (occurrence: CN)
  Receive Date: 20140723
  Receipt Date: 20140723
  Transmission Date: 20150326
  Serious: Yes (Hospitalization)
  Sender: FDA-Public Use
  Company Number: CN-JNJFOC-20140707176

PATIENT
  Age: 2 Month
  Sex: Female
  Weight: 6 kg

DRUGS (4)
  1. TYLENOL INFANT SUSPENSION DROPS [Suspect]
     Active Substance: ACETAMINOPHEN
     Indication: ANALGESIC THERAPY
     Route: 048
     Dates: start: 20140201, end: 20140203
  2. TYLENOL INFANT SUSPENSION DROPS [Suspect]
     Active Substance: ACETAMINOPHEN
     Indication: RHEUMATIC DISORDER
     Route: 048
     Dates: start: 20140201, end: 20140203
  3. CEFUROXIME. [Concomitant]
     Active Substance: CEFUROXIME
     Indication: INFECTION PROPHYLAXIS
     Route: 041
     Dates: start: 20140201, end: 20140203
  4. TYLENOL INFANT SUSPENSION DROPS [Suspect]
     Active Substance: ACETAMINOPHEN
     Indication: ANTIPYRESIS
     Route: 048
     Dates: start: 20140201, end: 20140203

REACTIONS (1)
  - Drug hypersensitivity [Recovered/Resolved]

NARRATIVE: CASE EVENT DATE: 20140201
